FAERS Safety Report 21395391 (Version 17)
Quarter: 2025Q3

REPORT INFORMATION
  Report Type: Report from Study
  Country: CA (occurrence: CA)
  Receive Date: 20220930
  Receipt Date: 20250804
  Transmission Date: 20251020
  Serious: Yes (Hospitalization, Other)
  Sender: TAKEDA
  Company Number: CA-TAKEDA-2022TUS067714

PATIENT
  Sex: Male

DRUGS (14)
  1. VEDOLIZUMAB [Suspect]
     Active Substance: VEDOLIZUMAB
     Indication: Crohn^s disease
  2. VEDOLIZUMAB [Suspect]
     Active Substance: VEDOLIZUMAB
     Dosage: 300 MILLIGRAM, Q4WEEKS
     Dates: start: 20180621
  3. VEDOLIZUMAB [Suspect]
     Active Substance: VEDOLIZUMAB
     Indication: Crohn^s disease
     Dosage: 108 MILLIGRAM, Q2WEEKS
     Dates: start: 20220715
  4. VEDOLIZUMAB [Suspect]
     Active Substance: VEDOLIZUMAB
     Dosage: 108 MILLIGRAM, 1/WEEK
     Dates: start: 20230223
  5. VEDOLIZUMAB [Suspect]
     Active Substance: VEDOLIZUMAB
     Dosage: 108 MILLIGRAM, 1/WEEK
  6. VEDOLIZUMAB [Suspect]
     Active Substance: VEDOLIZUMAB
     Dosage: 108 MILLIGRAM, 1/WEEK
  7. VEDOLIZUMAB [Suspect]
     Active Substance: VEDOLIZUMAB
     Dosage: 108 MILLIGRAM, 1/WEEK
  8. VEDOLIZUMAB [Suspect]
     Active Substance: VEDOLIZUMAB
     Dosage: 108 MILLIGRAM, 1/WEEK
  9. ASACOL [Concomitant]
     Active Substance: MESALAMINE
  10. ZOPICLONE [Concomitant]
     Active Substance: ZOPICLONE
     Indication: Sleep disorder
  11. IRON [Concomitant]
     Active Substance: IRON
  12. IRON [Concomitant]
     Active Substance: IRON
  13. VITAMIN D [Concomitant]
     Active Substance: VITAMIN D NOS
  14. SODIUM BICARBONATE [Concomitant]
     Active Substance: SODIUM BICARBONATE

REACTIONS (3)
  - Pneumonia aspiration [Not Recovered/Not Resolved]
  - Sepsis [Not Recovered/Not Resolved]
  - Pneumonia [Not Recovered/Not Resolved]
